FAERS Safety Report 5960761-7 (Version None)
Quarter: 2008Q4

REPORT INFORMATION
  Report Type: 
  Country: None (occurrence: None)
  Receive Date: 20081120
  Receipt Date: 20081113
  Transmission Date: 20090506
  Serious: Yes (Other)
  Sender: FDA-Public Use
  Company Number: CH-PFIZER INC-2008096158

PATIENT
  Age: 76 Year
  Sex: Female
  Weight: 78 kg

DRUGS (6)
  1. ZOLOFT [Suspect]
     Indication: DEPRESSION
     Route: 048
     Dates: start: 20080404, end: 20080915
  2. ESOMEPRAZOLE MAGNESIUM [Suspect]
     Indication: GASTRITIS
     Route: 048
     Dates: start: 20080101
  3. FOLVITE [Concomitant]
     Route: 048
     Dates: start: 20051101
  4. TORSEMIDE [Concomitant]
     Route: 048
     Dates: start: 20080401
  5. SERESTA [Concomitant]
     Route: 048
     Dates: start: 20051101
  6. GLUCOPHAGE [Concomitant]
     Route: 048
     Dates: start: 20071201

REACTIONS (2)
  - DRUG TOXICITY [None]
  - LONG QT SYNDROME [None]
